FAERS Safety Report 6475083-8 (Version None)
Quarter: 2009Q4

REPORT INFORMATION
  Report Type: 
  Country: None (occurrence: None)
  Receive Date: 20091204
  Receipt Date: 20090318
  Transmission Date: 20100525
  Serious: Yes (Other)
  Sender: FDA-Public Use
  Company Number: US-ELI_LILLY_AND_COMPANY-US200903004642

PATIENT
  Sex: Female

DRUGS (1)
  1. EVISTA [Suspect]
     Indication: BREAST CANCER IN SITU
     Dosage: UNK, UNKNOWN
     Route: 065
     Dates: start: 20080402

REACTIONS (8)
  - BREAST CANCER [None]
  - CONDITION AGGRAVATED [None]
  - FEELING ABNORMAL [None]
  - HORMONE LEVEL ABNORMAL [None]
  - HOT FLUSH [None]
  - INFLUENZA LIKE ILLNESS [None]
  - MUSCLE SPASMS [None]
  - OROPHARYNGEAL PAIN [None]
